FAERS Safety Report 11988742 (Version 2)
Quarter: 2016Q2

REPORT INFORMATION
  Report Type: Spontaneous
  Country: JP (occurrence: JP)
  Receive Date: 20160202
  Receipt Date: 20160406
  Transmission Date: 20160815
  Serious: Yes (Death, Other)
  Sender: FDA-Public Use
  Company Number: JP-TEVA-631092ISR

PATIENT
  Age: 77 Year
  Sex: Male

DRUGS (4)
  1. FASUDIL [Suspect]
     Active Substance: FASUDIL
     Dosage: 30 MILLIGRAM DAILY;
     Route: 042
  2. OZAGREL [Suspect]
     Active Substance: OZAGREL
     Dosage: 80 MILLIGRAM DAILY;
     Route: 050
  3. CILOSTAZOL. [Suspect]
     Active Substance: CILOSTAZOL
     Dosage: 100 MILLIGRAM DAILY;
     Route: 065
  4. CILOSTAZOL. [Suspect]
     Active Substance: CILOSTAZOL
     Dosage: INCREASED TO 200 MG ON HOSPITAL DAY 11
     Route: 065

REACTIONS (3)
  - Cerebral haematoma [Fatal]
  - Brain herniation [Fatal]
  - Infarction [Unknown]
